FAERS Safety Report 9801096 (Version 1)
Quarter: 2014Q1

REPORT INFORMATION
  Report Type: Spontaneous
  Country: MX (occurrence: MX)
  Receive Date: 20140107
  Receipt Date: 20140107
  Transmission Date: 20141002
  Serious: Yes (Congenital Anomaly)
  Sender: FDA-Public Use
  Company Number: MX-SA-2014SA000364

PATIENT
  Sex: Male

DRUGS (1)
  1. ARAVA [Suspect]
     Indication: MATERNAL EXPOSURE TIMING UNSPECIFIED
     Route: 064
     Dates: start: 1999, end: 201201

REACTIONS (3)
  - Trisomy 21 [Not Recovered/Not Resolved]
  - Exposure during pregnancy [Unknown]
  - Pulmonary hypertension [Not Recovered/Not Resolved]
